FAERS Safety Report 12115433 (Version 1)
Quarter: 2016Q1

REPORT INFORMATION
  Report Type: Spontaneous
  Country: DE (occurrence: DE)
  Receive Date: 20160225
  Receipt Date: 20160225
  Transmission Date: 20160526
  Serious: Yes (Other)
  Sender: FDA-Public Use
  Company Number: DE-BAYER-2016-027370

PATIENT
  Age: 30 Year
  Sex: Female
  Weight: 64 kg

DRUGS (2)
  1. MIRENA [Suspect]
     Active Substance: LEVONORGESTREL
     Indication: CONTRACEPTION
     Dosage: 20 MCG/24HR, CONT
     Route: 015
     Dates: start: 20120228, end: 20151210
  2. CYTOTEC [Concomitant]
     Active Substance: MISOPROSTOL
     Dosage: 2 DF, ONCE
     Dates: start: 20120227, end: 20120227

REACTIONS (4)
  - Pregnancy with contraceptive device [None]
  - Unintentional medical device removal [None]
  - Caesarean section [None]
  - Drug ineffective [None]

NARRATIVE: CASE EVENT DATE: 20151210
